FAERS Safety Report 23525997 (Version 1)
Quarter: 2024Q1

REPORT INFORMATION
  Report Type: Spontaneous
  Country: NL (occurrence: NL)
  Receive Date: 20240215
  Receipt Date: 20240215
  Transmission Date: 20240410
  Serious: Yes (Disabling)
  Sender: FDA-Public Use
  Company Number: None

PATIENT
  Age: 71 Year
  Sex: Female
  Weight: 94 kg

DRUGS (1)
  1. APIXABAN [Suspect]
     Active Substance: APIXABAN
     Indication: Atrial fibrillation
     Dosage: STRENGTH: 5 MG, 2DD 5 MG
     Dates: start: 20190801, end: 20230727

REACTIONS (2)
  - Spinal cord compression [Not Recovered/Not Resolved]
  - Subarachnoid haemorrhage [Not Recovered/Not Resolved]
